FAERS Safety Report 25310952 (Version 2)
Quarter: 2025Q2

REPORT INFORMATION
  Report Type: Spontaneous
  Country: JP (occurrence: JP)
  Receive Date: 20250514
  Receipt Date: 20250527
  Transmission Date: 20250717
  Serious: Yes (Other)
  Sender: TAKEDA
  Company Number: JP-TAKEDA-2025TUS044695

PATIENT
  Age: 31 Year
  Sex: Male
  Weight: 62.3 kg

DRUGS (1)
  1. LIALDA [Suspect]
     Active Substance: MESALAMINE
     Indication: Product used for unknown indication
     Dates: start: 20250423, end: 20250507

REACTIONS (2)
  - Gastrointestinal oedema [Unknown]
  - Abdominal pain [Unknown]
